FAERS Safety Report 24292811 (Version 1)
Quarter: 2024Q3

REPORT INFORMATION
  Report Type: Spontaneous
  Country: US (occurrence: None)
  Receive Date: 20240906
  Receipt Date: 20240906
  Transmission Date: 20241016
  Serious: No
  Sender: DOMPE FARMACEUTICI
  Company Number: US-FARMAPROD-202310-3111

PATIENT
  Sex: Male
  Weight: 71.99 kg

DRUGS (26)
  1. OXERVATE [Suspect]
     Active Substance: CENEGERMIN-BKBJ
     Indication: Neurotrophic keratopathy
     Route: 047
     Dates: start: 20231009
  2. OXERVATE [Suspect]
     Active Substance: CENEGERMIN-BKBJ
  3. SYSTANE (HYPROMELLOSE 2910 (4000 MPA.S)) [Concomitant]
     Active Substance: HYPROMELLOSE 2910 (4000 MPA.S)
     Dosage: 0.3 %-0.4%
  4. XIIDRA [Concomitant]
     Active Substance: LIFITEGRAST
  5. CULTURELLE HEALTH-WELLNESS [Concomitant]
  6. MODAFINIL [Concomitant]
     Active Substance: MODAFINIL
  7. CALCIUM CARBONATE [Concomitant]
     Active Substance: CALCIUM CARBONATE
     Dosage: 200 (500) MG
  8. LOTEPREDNOL ETABONATE [Concomitant]
     Active Substance: LOTEPREDNOL ETABONATE
     Dosage: GEL
  9. VICTOZA [Concomitant]
     Active Substance: LIRAGLUTIDE
     Dosage: 0.6 MG / 0.1 PEN INJECTOR
  10. METOPROLOL SUCCINATE [Concomitant]
     Active Substance: METOPROLOL SUCCINATE
     Dosage: FOR 24 HOURS
  11. AMIODARONE HYDROCHLORIDE [Concomitant]
     Active Substance: AMIODARONE HYDROCHLORIDE
  12. ATORVASTATIN CALCIUM [Concomitant]
     Active Substance: ATORVASTATIN CALCIUM
  13. SPIRONOLACTONE [Concomitant]
     Active Substance: SPIRONOLACTONE
  14. ASPIRIN [Concomitant]
     Active Substance: ASPIRIN
  15. PRAMIPEXOLE DIHYDROCHLORIDE [Concomitant]
     Active Substance: PRAMIPEXOLE DIHYDROCHLORIDE
  16. LISINOPRIL [Concomitant]
     Active Substance: LISINOPRIL
  17. CYCLOSPORINE [Concomitant]
     Active Substance: CYCLOSPORINE
  18. METHOCARBAMOL [Concomitant]
     Active Substance: METHOCARBAMOL
  19. ESCITALOPRAM OXALATE [Concomitant]
     Active Substance: ESCITALOPRAM OXALATE
  20. BUPROPION HYDROCHLORIDE [Concomitant]
     Active Substance: BUPROPION HYDROCHLORIDE
     Dosage: FOR 12 HOURS
  21. LORATADINE [Concomitant]
     Active Substance: LORATADINE
  22. CULTURELLE DIGESTIVE HEALTH [Concomitant]
  23. SERUM AUTOLOGOUS TEARS [Concomitant]
  24. UNSPECIFIED INGREDIENT [Concomitant]
     Active Substance: UNSPECIFIED INGREDIENT
  25. SINEMET [Concomitant]
     Active Substance: CARBIDOPA\LEVODOPA
     Indication: Parkinson^s disease
     Dosage: 10MG-100MG
  26. PREDNISONE [Concomitant]
     Active Substance: PREDNISONE
     Indication: Parkinson^s disease

REACTIONS (6)
  - Wrong technique in product usage process [Unknown]
  - Ocular hyperaemia [Unknown]
  - Eye discharge [Unknown]
  - Lacrimation increased [Unknown]
  - Periorbital swelling [Unknown]
  - Rhinorrhoea [Unknown]
